FAERS Safety Report 8238599-X (Version None)
Quarter: 2012Q1

REPORT INFORMATION
  Report Type: 
  Country: None (occurrence: None)
  Receive Date: 20120327
  Receipt Date: 20120320
  Transmission Date: 20120608
  Serious: Yes (Disabling, Other)
  Sender: FDA-Public Use
  Company Number: US-PFIZER INC-2012073843

PATIENT
  Sex: Male

DRUGS (4)
  1. NEURONTIN [Suspect]
     Dosage: 800 MG, 2X/DAY
  2. HUMULIN 70/30 [Concomitant]
     Dosage: 20 UNITS TWICE DAILY
  3. METRONIDAZOLE [Concomitant]
     Dosage: 375 MG (FREQUENCY UNKNOWN)
  4. EFFEXOR XR [Suspect]
     Dosage: 75 MG, QD

REACTIONS (4)
  - TYPE 2 DIABETES MELLITUS [None]
  - NEUROPATHY PERIPHERAL [None]
  - ACTIVITIES OF DAILY LIVING IMPAIRED [None]
  - DIARRHOEA [None]
